FAERS Safety Report 18700151 (Version 1)
Quarter: 2021Q1

REPORT INFORMATION
  Report Type: Spontaneous
  Country: US (occurrence: US)
  Receive Date: 20210104
  Receipt Date: 20210104
  Transmission Date: 20210419
  Serious: Yes (Hospitalization, Other)
  Sender: FDA-Public Use
  Company Number: US-GLAND PHARMA LIMITED-2020US008843

PATIENT
  Age: 56 Year
  Sex: Female

DRUGS (4)
  1. MESNA. [Suspect]
     Active Substance: MESNA
     Indication: ENDOMETRIAL STROMAL SARCOMA
     Dosage: UNK, CYCLIC
     Route: 065
     Dates: start: 201904
  2. IFOSFAMIDE. [Suspect]
     Active Substance: IFOSFAMIDE
     Indication: ENDOMETRIAL STROMAL SARCOMA
     Dosage: UNK, CYCLIC
     Route: 065
     Dates: start: 201904
  3. DOXORUBICIN HYDROCHLORIDE. [Suspect]
     Active Substance: DOXORUBICIN HYDROCHLORIDE
     Indication: ENDOMETRIAL STROMAL SARCOMA
     Dosage: UNK, CYCLIC
     Route: 065
     Dates: start: 201904
  4. DOXORUBICIN HYDROCHLORIDE. [Suspect]
     Active Substance: DOXORUBICIN HYDROCHLORIDE
     Dosage: UNK UNK, CYCLIC
     Route: 065
     Dates: start: 201906

REACTIONS (2)
  - Encephalopathy [Unknown]
  - Pneumothorax [Recovered/Resolved]

NARRATIVE: CASE EVENT DATE: 2019
